FAERS Safety Report 19865621 (Version 1)
Quarter: 2021Q3

REPORT INFORMATION
  Report Type: Spontaneous
  Country: IT (occurrence: IT)
  Receive Date: 20210921
  Receipt Date: 20210921
  Transmission Date: 20211014
  Serious: Yes (Hospitalization)
  Sender: FDA-Public Use
  Company Number: IT-ASTRAZENECA-2021A723083

PATIENT
  Age: 57 Year
  Sex: Male

DRUGS (9)
  1. BORTEZOMIB. [Suspect]
     Active Substance: BORTEZOMIB
     Indication: PLASMA CELL MYELOMA
     Dosage: 1.0DF UNKNOWN
     Route: 042
  2. LYRICA [Concomitant]
     Active Substance: PREGABALIN
  3. IPSTYL 120 MG SOLUTION FOR INJECTION [Concomitant]
  4. BACTRIM [Concomitant]
     Active Substance: SULFAMETHOXAZOLE\TRIMETHOPRIM
  5. NORVASC 5 MG TABLETS [Concomitant]
  6. OMEPRAZOLE. [Suspect]
     Active Substance: OMEPRAZOLE
     Dosage: 1.0DF UNKNOWN
     Route: 048
  7. TAPENTADOL [Suspect]
     Active Substance: TAPENTADOL
     Indication: NEUROPATHY PERIPHERAL
     Dosage: 1.0DF UNKNOWN
     Route: 048
  8. RIOPAN 800 MG CHEWABLE TABLETS [Concomitant]
  9. ACICLOVIR [Concomitant]
     Active Substance: ACYCLOVIR
     Route: 048

REACTIONS (2)
  - Inappropriate antidiuretic hormone secretion [Recovering/Resolving]
  - Hyponatraemia [Recovering/Resolving]

NARRATIVE: CASE EVENT DATE: 20210727
